FAERS Safety Report 14677249 (Version 2)
Quarter: 2018Q1

REPORT INFORMATION
  Report Type: Spontaneous
  Country: US (occurrence: US)
  Receive Date: 20180324
  Receipt Date: 20180329
  Transmission Date: 20180509
  Serious: No
  Sender: FDA-Public Use
  Company Number: US-JNJFOC-20180316566

PATIENT
  Age: 19 Year
  Sex: Male

DRUGS (7)
  1. KAPVAY [Concomitant]
     Active Substance: CLONIDINE HYDROCHLORIDE
     Dosage: 2 IN THE MORNING AND 2 AT BEDTIME
     Route: 065
  2. DEPAKOTE [Concomitant]
     Active Substance: DIVALPROEX SODIUM
     Dosage: AT NIGHT
     Route: 065
  3. INVEGA [Suspect]
     Active Substance: PALIPERIDONE
     Indication: BIPOLAR DISORDER
     Route: 048
  4. TEGRETOL [Concomitant]
     Active Substance: CARBAMAZEPINE
     Dosage: 4 TABLETS IN THE MORNING AND 4 ??TABLETS AT NIGHT
     Route: 065
  5. VYVANSE [Concomitant]
     Active Substance: LISDEXAMFETAMINE DIMESYLATE
     Dosage: IN MORNING
     Route: 065
  6. DEPAKOTE [Concomitant]
     Active Substance: DIVALPROEX SODIUM
     Dosage: IN MORNING
     Route: 065
  7. CHLORPROMAZINE HCL [Concomitant]
     Active Substance: CHLORPROMAZINE HYDROCHLORIDE
     Dosage: 25 MG/ ? TABLET IN THE MORNING, 1 TABLET AT??11 AM, 1 TABLET AT 3 PM, AND 1 TABLET AT 7 PM
     Route: 065

REACTIONS (1)
  - Tic [Not Recovered/Not Resolved]

NARRATIVE: CASE EVENT DATE: 201801
